FAERS Safety Report 9651025 (Version 1)
Quarter: 2013Q4

REPORT INFORMATION
  Report Type: Spontaneous
  Country: US (occurrence: None)
  Receive Date: 20131028
  Receipt Date: 20131028
  Transmission Date: 20140711
  Serious: Yes (Hospitalization)
  Sender: FDA-Public Use
  Company Number: None

PATIENT
  Age: 81 Year
  Sex: Male

DRUGS (1)
  1. ACTHAR HP [Suspect]
     Indication: GLOMERULONEPHRITIS MEMBRANOUS
     Route: 058
     Dates: start: 20130918, end: 20131023

REACTIONS (1)
  - Hypersensitivity [None]
